FAERS Safety Report 9535427 (Version 1)
Quarter: 2013Q3

REPORT INFORMATION
  Report Type: Spontaneous
  Country: US (occurrence: US)
  Receive Date: 20130918
  Receipt Date: 20130918
  Transmission Date: 20140515
  Serious: Yes (Hospitalization)
  Sender: FDA-Public Use
  Company Number: US-BAXTER-2013BAX036096

PATIENT
  Age: 60 Year
  Sex: Female

DRUGS (1)
  1. DIANEAL PD2 [Suspect]
     Indication: PERITONEAL DIALYSIS
     Route: 033
     Dates: start: 201206

REACTIONS (3)
  - Blood glucose increased [Recovering/Resolving]
  - Nerve block [Recovering/Resolving]
  - Hypertension [Recovering/Resolving]
